FAERS Safety Report 14080755 (Version 2)
Quarter: 2017Q4

REPORT INFORMATION
  Report Type: Not Available
  Country: None (occurrence: US)
  Receive Date: 20171012
  Receipt Date: 20171012
  Transmission Date: 20180321
  Serious: No
  Sender: FDA-Public Use
  Company Number: US-AKORN-63107

PATIENT
  Age: 40 Year
  Sex: Female

DRUGS (1)
  1. LIDOCAINE 2.5% AND PRILOCAINE 2.5% CREAM [Suspect]
     Active Substance: LIDOCAINE\PRILOCAINE

REACTIONS (2)
  - Glossitis [None]
  - Burning sensation [None]
